FAERS Safety Report 4326410-9 (Version None)
Quarter: 2004Q1

REPORT INFORMATION
  Report Type: 
  Country: None (occurrence: None)
  Receive Date: 20040322
  Receipt Date: 20031229
  Transmission Date: 20041129
  Serious: Yes (Hospitalization, Other)
  Sender: FDA-Public Use
  Company Number: 2003037151

PATIENT
  Age: 44 Year
  Sex: Male
  Weight: 79 kg

DRUGS (3)
  1. VFEND [Suspect]
     Indication: ASPERGILLOSIS
     Dosage: 400 MG (BID), ORAL
     Route: 048
     Dates: start: 20030801
  2. AMPHOTERICIN B [Concomitant]
  3. CASPOFUNGIN (CASPOFUNGIN) [Concomitant]

REACTIONS (4)
  - DEPRESSION [None]
  - PANCYTOPENIA [None]
  - PLATELET COUNT DECREASED [None]
  - WHITE BLOOD CELL COUNT DECREASED [None]
